FAERS Safety Report 16161236 (Version 1)
Quarter: 2019Q2

REPORT INFORMATION
  Report Type: Spontaneous
  Country: US (occurrence: US)
  Receive Date: 20190405
  Receipt Date: 20190405
  Transmission Date: 20190711
  Serious: No
  Sender: FDA-Public Use
  Company Number: US-ASTRAZENECA-2019SE48986

PATIENT
  Sex: Male
  Weight: 70.3 kg

DRUGS (5)
  1. BRILINTA [Suspect]
     Active Substance: TICAGRELOR
     Indication: STENT PLACEMENT
     Route: 048
     Dates: start: 20181027
  2. ASPIRIN. [Concomitant]
     Active Substance: ASPIRIN
  3. ATORVASTATIN [Concomitant]
     Active Substance: ATORVASTATIN
  4. METOPROLOL TARTRATE. [Suspect]
     Active Substance: METOPROLOL TARTRATE
     Route: 048
  5. BRILINTA [Suspect]
     Active Substance: TICAGRELOR
     Indication: ARTERIAL OCCLUSIVE DISEASE
     Route: 048
     Dates: start: 20181027

REACTIONS (5)
  - Contusion [Not Recovered/Not Resolved]
  - Epistaxis [Not Recovered/Not Resolved]
  - Asthenia [Unknown]
  - Syncope [Unknown]
  - Dizziness [Unknown]
